FAERS Safety Report 17459922 (Version 1)
Quarter: 2020Q1

REPORT INFORMATION
  Report Type: Spontaneous
  Country: US (occurrence: US)
  Receive Date: 20200225
  Receipt Date: 20200225
  Transmission Date: 20200409
  Serious: No
  Sender: FDA-Public Use
  Company Number: US-IGSA-SR10008215

PATIENT
  Age: 37 Year
  Sex: Female
  Weight: 62 kg

DRUGS (8)
  1. WELLBUTRIN [Concomitant]
     Active Substance: BUPROPION HYDROCHLORIDE
  2. SYMBICORT [Concomitant]
     Active Substance: BUDESONIDE\FORMOTEROL FUMARATE DIHYDRATE
  3. VENTOLIN [Concomitant]
     Active Substance: ALBUTEROL SULFATE
  4. PROLASTIN-C [Suspect]
     Active Substance: .ALPHA.1-PROTEINASE INHIBITOR HUMAN
     Dosage: 60 MG/KG, Q.WK.
     Route: 042
     Dates: start: 20190414, end: 20190414
  5. DICYCLOMINE                        /00068601/ [Concomitant]
     Active Substance: DICYCLOMINE HYDROCHLORIDE
  6. PROTONIX                           /00661201/ [Concomitant]
     Active Substance: OMEPRAZOLE
  7. VITAMIN D                          /00107901/ [Concomitant]
     Active Substance: ERGOCALCIFEROL
  8. PROLASTIN-C [Suspect]
     Active Substance: .ALPHA.1-PROTEINASE INHIBITOR HUMAN
     Indication: ALPHA-1 ANTI-TRYPSIN DEFICIENCY
     Dosage: 60 MG/KG, Q.WK.
     Route: 042
     Dates: start: 20170516

REACTIONS (4)
  - Bone pain [Recovered/Resolved]
  - Nervousness [Recovered/Resolved]
  - Headache [Recovered/Resolved]
  - Feeling jittery [Recovered/Resolved]

NARRATIVE: CASE EVENT DATE: 20190414
